FAERS Safety Report 13726581 (Version 2)
Quarter: 2017Q3

REPORT INFORMATION
  Report Type: Report from Study
  Country: CA (occurrence: CA)
  Receive Date: 20170706
  Receipt Date: 20170718
  Transmission Date: 20171127
  Serious: Yes (Other)
  Sender: FDA-Public Use
  Company Number: CA-GILEAD-2017-0279969

PATIENT

DRUGS (1)
  1. SOFOSBUVIR W/VELPATASVIR [Suspect]
     Active Substance: SOFOSBUVIR\VELPATASVIR
     Indication: CHRONIC HEPATITIS C
     Dosage: UNK
     Route: 065
     Dates: end: 201612

REACTIONS (5)
  - Hepatitis cholestatic [Unknown]
  - Drug ineffective [Unknown]
  - Treatment failure [Unknown]
  - Liver transplant [Unknown]
  - Hepatitis C [Unknown]

NARRATIVE: CASE EVENT DATE: 20170519
